FAERS Safety Report 7125722-3 (Version None)
Quarter: 2010Q4

REPORT INFORMATION
  Report Type: 
  Country: None (occurrence: None)
  Receive Date: 20101129
  Receipt Date: 20101121
  Transmission Date: 20110411
  Serious: Yes (Hospitalization)
  Sender: FDA-Public Use
  Company Number: B0669649A

PATIENT
  Age: 16 Year
  Sex: Female

DRUGS (4)
  1. LAMICTAL [Suspect]
     Route: 065
  2. IRON [Concomitant]
     Dosage: 50MG TWICE PER DAY
  3. CLOBAZAM [Concomitant]
  4. OLANZAPINE [Concomitant]

REACTIONS (10)
  - CONFUSIONAL STATE [None]
  - CONVULSION [None]
  - DEPRESSION [None]
  - EPILEPSY [None]
  - INSOMNIA [None]
  - PARANOIA [None]
  - PSYCHOTIC DISORDER [None]
  - RASH GENERALISED [None]
  - SPEECH DISORDER [None]
  - WEIGHT INCREASED [None]
